FAERS Safety Report 7993222-4 (Version None)
Quarter: 2011Q4

REPORT INFORMATION
  Report Type: 
  Country: None (occurrence: None)
  Receive Date: 20111219
  Receipt Date: 20110902
  Transmission Date: 20120403
  Serious: No
  Sender: FDA-Public Use
  Company Number: US-ASTRAZENECA-2011SE48077

PATIENT
  Age: 87 Year
  Sex: Female
  Weight: 62.1 kg

DRUGS (1)
  1. CRESTOR [Suspect]
     Route: 048
     Dates: start: 20110805

REACTIONS (5)
  - MUSCLE TIGHTNESS [None]
  - ASTHENIA [None]
  - BONE PAIN [None]
  - MYALGIA [None]
  - HYPOPNOEA [None]
